FAERS Safety Report 5230167-7 (Version None)
Quarter: 2007Q1

REPORT INFORMATION
  Report Type: 
  Country: None (occurrence: None)
  Receive Date: 20070206
  Receipt Date: 20070124
  Transmission Date: 20070707
  Serious: Yes (Hospitalization)
  Sender: FDA-Public Use
  Company Number: US-PFIZER INC-2007006553

PATIENT
  Weight: 71.7 kg

DRUGS (5)
  1. ZITHROMAX [Suspect]
     Route: 048
     Dates: start: 20060416, end: 20060417
  2. REBIF [Suspect]
     Indication: MULTIPLE SCLEROSIS
     Route: 058
     Dates: start: 20060417, end: 20060427
  3. BACTRIM [Suspect]
     Route: 048
     Dates: start: 20060418, end: 20060401
  4. PREDNISONE [Suspect]
     Route: 048
     Dates: start: 20060401
  5. IBUPROFEN [Concomitant]
     Route: 048
     Dates: start: 20060417, end: 20060424

REACTIONS (3)
  - CLOSTRIDIAL INFECTION [None]
  - DRUG HYPERSENSITIVITY [None]
  - STEVENS-JOHNSON SYNDROME [None]
